FAERS Safety Report 4727510-1 (Version None)
Quarter: 2005Q3

REPORT INFORMATION
  Report Type: 
  Country: None (occurrence: None)
  Receive Date: 20050727
  Receipt Date: 20050727
  Transmission Date: 20060218
  Serious: Yes (Other)
  Sender: FDA-Public Use
  Company Number: None

PATIENT
  Sex: Male
  Weight: 58 kg

DRUGS (1)
  1. LINEZOLID   600 MG     PHARMACIA [Suspect]
     Indication: INFECTION
     Dosage: 600   BID   ORAL
     Route: 048
     Dates: start: 20050616, end: 20050626

REACTIONS (1)
  - LIVER FUNCTION TEST ABNORMAL [None]
